FAERS Safety Report 6220136 (Version 6)
Quarter: 2013Q2

REPORT INFORMATION
  Report Type: Spontaneous
  Country: US (occurrence: US)
  Receive Date: 20060824
  Receipt Date: 20130409
  Transmission Date: 20140414
  Serious: Yes (Other)
  Sender: FDA-Public Use
  Company Number: US-PFIZER INC-2006098752

PATIENT
  Age: 73 Year
  Sex: Male
  Weight: 68 kg

DRUGS (7)
  1. DILANTIN [Suspect]
     Indication: CONVULSION
     Dosage: 100 MG, 3X/DAY
  2. DILANTIN [Interacting]
     Indication: EPILEPSY
  3. MOTRIN [Interacting]
     Indication: PAIN
     Dosage: 800 MG THREE TIMES DAILY
     Route: 048
     Dates: start: 20050823
  4. SKELAXIN [Suspect]
     Indication: PAIN
     Dosage: 800 MG THREE TIMES DAILY
     Dates: start: 20050823
  5. ROBAXIN [Suspect]
     Indication: PAIN
     Dosage: 750 MG THREE TIMES DAILY
     Dates: start: 20050823
  6. VICODIN [Suspect]
     Indication: PAIN
     Dosage: UNK
     Dates: start: 20050823
  7. LIPITOR [Concomitant]
     Dosage: UNK

REACTIONS (20)
  - Convulsion [Recovered/Resolved]
  - Memory impairment [Recovered/Resolved]
  - Gastritis erosive [Recovering/Resolving]
  - Anticonvulsant drug level below therapeutic [Unknown]
  - Body height decreased [Not Recovered/Not Resolved]
  - Pain [Unknown]
  - Diarrhoea [Recovering/Resolving]
  - Blood cholesterol increased [Unknown]
  - Drug interaction [Unknown]
  - Malaise [Unknown]
  - Coronary artery bypass [None]
  - Road traffic accident [None]
  - Speech disorder [None]
  - Contusion [None]
  - Muscle injury [None]
  - Post-traumatic neck syndrome [None]
  - Anticonvulsant drug level decreased [None]
  - Blood cholesterol increased [None]
  - Loss of consciousness [None]
  - Pain [None]
